FAERS Safety Report 17115797 (Version 1)
Quarter: 2019Q4

REPORT INFORMATION
  Report Type: Spontaneous
  Country: US (occurrence: US)
  Receive Date: 20191204
  Receipt Date: 20191204
  Transmission Date: 20200122
  Serious: Yes (Hospitalization)
  Sender: FDA-Public Use
  Company Number: None

PATIENT
  Age: 78 Year
  Sex: Male
  Weight: 77.85 kg

DRUGS (5)
  1. TAMSULOSIN [Concomitant]
     Active Substance: TAMSULOSIN
  2. ROSUVASTATIN 5 MG [Suspect]
     Active Substance: ROSUVASTATIN
     Indication: BLOOD CHOLESTEROL INCREASED
     Dosage: ?          QUANTITY:1 TABLET(S);?
     Route: 048
     Dates: start: 20191014, end: 20191124
  3. VIT D [Concomitant]
     Active Substance: VITAMIN D NOS
  4. DULOXETINE. [Concomitant]
     Active Substance: DULOXETINE
  5. VITAMIN C [Concomitant]
     Active Substance: ASCORBIC ACID

REACTIONS (12)
  - Thirst [None]
  - Viral infection [None]
  - Tuberculosis [None]
  - Hyperhidrosis [None]
  - Weight decreased [None]
  - Pyrexia [None]
  - Decreased appetite [None]
  - Dry mouth [None]
  - Diarrhoea [None]
  - Fatigue [None]
  - Asthenia [None]
  - Dysuria [None]

NARRATIVE: CASE EVENT DATE: 20191102
